FAERS Safety Report 9158404 (Version 2)
Quarter: 2013Q1

REPORT INFORMATION
  Report Type: Spontaneous
  Country: JP (occurrence: None)
  Receive Date: 20130213
  Receipt Date: 20130222
  Transmission Date: 20140127
  Serious: Yes (Other)
  Sender: FDA-Public Use
  Company Number: TCI2013A00726

PATIENT
  Age: 69 Year
  Sex: Female

DRUGS (10)
  1. LIOVEL [Suspect]
     Indication: DIABETES MELLITUS
     Route: 048
     Dates: start: 20120916, end: 20130203
  2. METGLUCO(METFORMIN HYDROCHLORIDE) [Concomitant]
  3. MICARDIS (TELMISARTAN) [Concomitant]
  4. CADUET 4(AMLODIPINE BESILATE, ATORVASTAIN CALCIUM) [Concomitant]
  5. DIART (AZOSEMIDE) [Concomitant]
  6. PRODONER(BERAPROST SODIUM) [Concomitant]
  7. AMLODIPINE OD (AMLODIPINE BESILATE) [Concomitant]
  8. ANPLAG(SARPOGRELATE HYDROCHLORIDE) [Concomitant]
  9. LANSOPRAZOLE OD (LANSOPRAZOLE) [Concomitant]
  10. CILOSLET(CILOSTAZOL) [Concomitant]

REACTIONS (4)
  - Hyperkalaemia [None]
  - Palpitations [None]
  - Sinus tachycardia [None]
  - Electrocardiogram T wave amplitude decreased [None]
